FAERS Safety Report 8539762-0 (Version None)
Quarter: 2012Q3

REPORT INFORMATION
  Report Type: 
  Country: None (occurrence: None)
  Receive Date: 20120726
  Receipt Date: 20120716
  Transmission Date: 20120928
  Serious: Yes (Other)
  Sender: FDA-Public Use
  Company Number: DE-FRI-1000037303

PATIENT
  Sex: Female

DRUGS (1)
  1. NEBIVOLOL [Suspect]
     Indication: ARRHYTHMIA
     Route: 048

REACTIONS (4)
  - SYNCOPE [None]
  - OFF LABEL USE [None]
  - ARRHYTHMIA [None]
  - HEART RATE INCREASED [None]
